FAERS Safety Report 18494104 (Version 2)
Quarter: 2020Q4

REPORT INFORMATION
  Report Type: Report from Study
  Country: SB (occurrence: SK)
  Receive Date: 20201111
  Receipt Date: 20201210
  Transmission Date: 20210114
  Serious: Yes (Hospitalization, Other)
  Sender: FDA-Public Use
  Company Number: SK-SHIRE-SK201936114

PATIENT

DRUGS (14)
  1. HUMAN IMMUNOGLOBULIN; HYALURONIDASE [Suspect]
     Active Substance: HUMAN IMMUNOGLOBULIN G\HYALURONIDASE RECOMBINANT HUMAN
     Indication: PRIMARY IMMUNODEFICIENCY SYNDROME
     Dosage: 80 MILLILITER
     Route: 058
     Dates: start: 20180823, end: 20180823
  2. HUMAN IMMUNOGLOBULIN; HYALURONIDASE [Suspect]
     Active Substance: HUMAN IMMUNOGLOBULIN G\HYALURONIDASE RECOMBINANT HUMAN
     Dosage: 500 MILLIGRAM/KILOGRAM
     Dates: start: 20180830, end: 20180830
  3. HUMAN IMMUNOGLOBULIN; HYALURONIDASE [Suspect]
     Active Substance: HUMAN IMMUNOGLOBULIN G\HYALURONIDASE RECOMBINANT HUMAN
     Dosage: 500 MILLIGRAM/KILOGRAM
     Dates: start: 20190319, end: 20190319
  4. DALACIN C PHOSPH. [Concomitant]
     Indication: ACUTE SINUSITIS
     Dosage: 300 MILLIGRAM, BID
     Route: 048
     Dates: start: 20181220, end: 20190103
  5. HUMAN IMMUNOGLOBULIN; HYALURONIDASE [Suspect]
     Active Substance: HUMAN IMMUNOGLOBULIN G\HYALURONIDASE RECOMBINANT HUMAN
     Dosage: 500 MILLIGRAM/KILOGRAM
     Route: 058
     Dates: start: 20180823, end: 20180823
  6. HUMAN IMMUNOGLOBULIN; HYALURONIDASE [Suspect]
     Active Substance: HUMAN IMMUNOGLOBULIN G\HYALURONIDASE RECOMBINANT HUMAN
     Dosage: 500 MILLIGRAM/KILOGRAM
     Dates: start: 20180911, end: 20180911
  7. HUMAN IMMUNOGLOBULIN; HYALURONIDASE [Suspect]
     Active Substance: HUMAN IMMUNOGLOBULIN G\HYALURONIDASE RECOMBINANT HUMAN
     Dosage: 500 MILLIGRAM/KILOGRAM
     Dates: start: 20181227, end: 20181227
  8. HUMAN IMMUNOGLOBULIN; HYALURONIDASE [Suspect]
     Active Substance: HUMAN IMMUNOGLOBULIN G\HYALURONIDASE RECOMBINANT HUMAN
     Indication: HYPOGAMMAGLOBULINAEMIA
     Dosage: 330 MILLILITER, EVERY 4 WK
     Route: 058
     Dates: start: 20191002, end: 20191002
  9. HUMAN IMMUNOGLOBULIN; HYALURONIDASE [Suspect]
     Active Substance: HUMAN IMMUNOGLOBULIN G\HYALURONIDASE RECOMBINANT HUMAN
     Dosage: 500 MILLIGRAM/KILOGRAM
     Dates: start: 20190611, end: 20190611
  10. ERDOMED [Concomitant]
     Active Substance: ERDOSTEINE
     Indication: ACUTE SINUSITIS
     Dosage: 1 DOSAGE FORM, BID
     Dates: start: 20181201
  11. CIPROFLOXACINE AB [Concomitant]
     Active Substance: CIPROFLOXACIN HYDROCHLORIDE
     Indication: PNEUMONIA
     Dosage: 400 MILLIGRAM, BID
     Dates: start: 20191022, end: 20191104
  12. HUMAN IMMUNOGLOBULIN; HYALURONIDASE [Suspect]
     Active Substance: HUMAN IMMUNOGLOBULIN G\HYALURONIDASE RECOMBINANT HUMAN
     Dosage: 500 MILLIGRAM/KILOGRAM
     Dates: start: 20181003, end: 20181003
  13. ASMANEX [Concomitant]
     Active Substance: MOMETASONE FUROATE
     Indication: BRONCHITIS CHRONIC
     Dosage: 400 MICROGRAM, QD
     Dates: start: 201608
  14. HUMAN IMMUNOGLOBULIN; HYALURONIDASE [Suspect]
     Active Substance: HUMAN IMMUNOGLOBULIN G\HYALURONIDASE RECOMBINANT HUMAN
     Dosage: 500 MILLIGRAM/KILOGRAM
     Dates: start: 20190904, end: 20190904

REACTIONS (2)
  - Syncope [Recovered/Resolved]
  - Pneumonia [Recovered/Resolved]

NARRATIVE: CASE EVENT DATE: 20191022
